FAERS Safety Report 6444650-X (Version None)
Quarter: 2009Q4

REPORT INFORMATION
  Report Type: 
  Country: None (occurrence: None)
  Receive Date: 20091116
  Receipt Date: 20091116
  Transmission Date: 20100525
  Serious: Yes (Other)
  Sender: FDA-Public Use
  Company Number: None

PATIENT
  Age: 54 Year
  Sex: Male
  Weight: 77.1115 kg

DRUGS (5)
  1. CIALIS [Suspect]
     Indication: ERECTILE DYSFUNCTION
     Dosage: 5 MG QD PO 2.5 MG QD PO
     Route: 048
     Dates: start: 20090804
  2. VALTREX [Concomitant]
  3. LIPITOR [Concomitant]
  4. NASONEX [Concomitant]
  5. ANDROGEL [Concomitant]

REACTIONS (1)
  - HEADACHE [None]
